FAERS Safety Report 7516182-9 (Version None)
Quarter: 2011Q2

REPORT INFORMATION
  Report Type: 
  Country: None (occurrence: None)
  Receive Date: 20110601
  Receipt Date: 20110524
  Transmission Date: 20111010
  Serious: Yes (Other)
  Sender: FDA-Public Use
  Company Number: US-ROCHE-779189

PATIENT
  Sex: Male

DRUGS (5)
  1. COPEGUS [Suspect]
     Route: 065
     Dates: start: 20100606, end: 20100901
  2. COPEGUS [Suspect]
     Indication: HEPATITIS C
     Dosage: OTHER INDICATION: HIV
     Route: 065
     Dates: start: 20100425, end: 20100601
  3. PEGASYS [Suspect]
     Route: 065
     Dates: start: 20100606, end: 20100901
  4. PEGASYS [Suspect]
     Indication: HEPATITIS C
     Dosage: OTHER INDICATION: HIV FORM: PRE-FILLED SYRINGES
     Route: 065
     Dates: start: 20100425, end: 20100601
  5. INFERGEN [Suspect]
     Indication: HEPATITIS C
     Dosage: OTHER INDICATION: HIV
     Route: 065

REACTIONS (3)
  - VIRAL LOAD INCREASED [None]
  - ILL-DEFINED DISORDER [None]
  - GRAND MAL CONVULSION [None]
